FAERS Safety Report 10863467 (Version 1)
Quarter: 2015Q1

REPORT INFORMATION
  Report Type: Spontaneous
  Country: US (occurrence: US)
  Receive Date: 20150223
  Receipt Date: 20150223
  Transmission Date: 20150721
  Serious: Yes (Other)
  Sender: FDA-Public Use
  Company Number: US-CELGENEUS-USA-2014100933

PATIENT
  Age: 71 Year
  Sex: Female
  Weight: 90.35 kg

DRUGS (2)
  1. REVLIMID [Suspect]
     Active Substance: LENALIDOMIDE
     Indication: PLASMA CELL MYELOMA
     Route: 048
     Dates: start: 20140409
  2. REVLIMID [Suspect]
     Active Substance: LENALIDOMIDE
     Route: 048
     Dates: start: 201409

REACTIONS (4)
  - Dizziness [Unknown]
  - Paraesthesia [Unknown]
  - Agitation [Unknown]
  - Disorientation [Unknown]

NARRATIVE: CASE EVENT DATE: 201409
